FAERS Safety Report 9701872 (Version 2)
Quarter: 2013Q4

REPORT INFORMATION
  Report Type: Report from Study
  Country: US (occurrence: US)
  Receive Date: 20131121
  Receipt Date: 20131121
  Transmission Date: 20140711
  Serious: Yes (Hospitalization)
  Sender: FDA-Public Use
  Company Number: US-ACTELION-A-US2013-84236

PATIENT
  Age: 66 Year
  Sex: Female

DRUGS (14)
  1. TRACLEER [Suspect]
     Indication: PULMONARY ARTERIAL HYPERTENSION
     Dosage: 125 MG, BID
     Route: 048
     Dates: start: 2009
  2. REVATIO [Concomitant]
     Dosage: 20 MG, TID
     Dates: start: 2009
  3. TYVASO [Concomitant]
     Dosage: 9 PUFF, QID
     Dates: start: 2009
  4. XANAX [Concomitant]
     Dosage: 0.5 MG, PRN
     Dates: start: 2005
  5. NEXIUM [Concomitant]
     Dosage: 40 MG, PRN
     Dates: start: 2005
  6. TESSALON [Concomitant]
     Dosage: 1 CAPSULE EVERY 3-4 HOURS
     Dates: start: 2005
  7. HYDROCODONE [Concomitant]
     Dosage: 7.5/200 MG EVERY 8 HOURS
     Dates: start: 2005
  8. SYMBICORT [Concomitant]
     Dosage: 2 PUFF, QD
     Dates: start: 2005
  9. ALDACTONE [Concomitant]
     Dosage: 12.5 MG, QD
     Dates: start: 2009
  10. DIGOXIN [Concomitant]
     Dosage: 0.125 MG, QD
     Dates: start: 2005
  11. POTASSIUM [Concomitant]
     Dosage: 10 MEQ, QD
     Dates: start: 2005
  12. ASPIRIN [Concomitant]
     Dosage: 81 MG, QD
     Dates: start: 2005
  13. DILTIAZEM [Concomitant]
     Dosage: 180 MG, QD
     Dates: start: 2005
  14. TRAMADOL [Concomitant]
     Dosage: 50 MG, PRN
     Dates: start: 2005

REACTIONS (4)
  - Blood iron decreased [Not Recovered/Not Resolved]
  - Pneumonia [Not Recovered/Not Resolved]
  - Heart rate increased [Recovered/Resolved]
  - Sinusitis [Unknown]
